FAERS Safety Report 7219178-X (Version None)
Quarter: 2011Q1

REPORT INFORMATION
  Report Type: 
  Country: None (occurrence: None)
  Receive Date: 20110111
  Receipt Date: 20110106
  Transmission Date: 20110831
  Serious: Yes (Life-Threatening, Hospitalization, Other)
  Sender: FDA-Public Use
  Company Number: DE-PFIZER INC-2008061033

PATIENT
  Age: 15 Year
  Sex: Female
  Weight: 38 kg

DRUGS (1)
  1. SOMATROPIN [Suspect]
     Indication: HYPOPITUITARISM
     Dosage: 1 MG, 1X/DAY
     Dates: start: 20061222, end: 20080717

REACTIONS (1)
  - GERM CELL CANCER [None]
